FAERS Safety Report 19509214 (Version 3)
Quarter: 2021Q3

REPORT INFORMATION
  Report Type: Report from Study
  Country: US (occurrence: US)
  Receive Date: 20210709
  Receipt Date: 20210930
  Transmission Date: 20211014
  Serious: Yes (Other)
  Sender: FDA-Public Use
  Company Number: US-TAIHO ONCOLOGY  INC-EU-2021-02097

PATIENT
  Age: 76 Year
  Sex: Female

DRUGS (33)
  1. LONSURF [Suspect]
     Active Substance: TIPIRACIL HYDROCHLORIDE\TRIFLURIDINE
     Indication: COLON NEOPLASM
     Dosage: CYCLE UNKNOWN
     Route: 048
     Dates: start: 20210409
  2. COZAAR [Concomitant]
     Active Substance: LOSARTAN POTASSIUM
  3. SYNTHROID [Concomitant]
     Active Substance: LEVOTHYROXINE SODIUM
  4. AMLODIPINE [Concomitant]
     Active Substance: AMLODIPINE BESYLATE
  5. ROCALTROL [Concomitant]
     Active Substance: CALCITRIOL
  6. OMEPRAZOLE. [Concomitant]
     Active Substance: OMEPRAZOLE
  7. TRAZODONE [Concomitant]
     Active Substance: TRAZODONE HYDROCHLORIDE
     Dosage: NIGHTLY
  8. COMPAZINE [Concomitant]
     Active Substance: PROCHLORPERAZINE MALEATE
  9. LOSARTAN POTASSIUM. [Concomitant]
     Active Substance: LOSARTAN POTASSIUM
  10. POTASSIUM CHLORIDE. [Concomitant]
     Active Substance: POTASSIUM CHLORIDE
  11. PROCHLORPERAZINE. [Concomitant]
     Active Substance: PROCHLORPERAZINE
  12. ANASTRAZOLE [Concomitant]
     Active Substance: ANASTROZOLE
  13. FEROSUL [Concomitant]
     Active Substance: FERROUS SULFATE
  14. GABAPENTIN. [Concomitant]
     Active Substance: GABAPENTIN
  15. ONDANSETRON [Concomitant]
     Active Substance: ONDANSETRON
  16. BENADRYL ALLERGY [Concomitant]
     Active Substance: DIPHENHYDRAMINE HYDROCHLORIDE
  17. CYANOCOBALAMIN. [Concomitant]
     Active Substance: CYANOCOBALAMIN
  18. CALCIUM CARBONATE WITH D [Concomitant]
  19. TUMS [Concomitant]
     Active Substance: CALCIUM CARBONATE
     Dosage: 9 FOR THE DAY
  20. VITAMIN B12 [Concomitant]
     Active Substance: CYANOCOBALAMIN
  21. CALCITROL [Concomitant]
  22. PRAVASTATIN. [Concomitant]
     Active Substance: PRAVASTATIN
  23. CALCIUM 600 + D [Concomitant]
     Active Substance: CALCIUM\VITAMIN D
  24. TYLENOL [Concomitant]
     Active Substance: ACETAMINOPHEN
  25. PRAVACHOL [Concomitant]
     Active Substance: PRAVASTATIN SODIUM
     Dosage: NIGHTLY
  26. KLOR?CON [Concomitant]
     Active Substance: POTASSIUM CHLORIDE
  27. CRANBERRY. [Concomitant]
     Active Substance: CRANBERRY
     Dosage: 4500 (UNITS NOT SPECIFIED)
  28. TYLENOL EXTRA STRENGTH [Concomitant]
     Active Substance: ACETAMINOPHEN
     Dosage: AS NEEDED
  29. HYDROCODONE BITARTRATE AND ACETAMINOPHEN [Concomitant]
     Active Substance: ACETAMINOPHEN\HYDROCODONE BITARTRATE
  30. VITAMIN D3 [Concomitant]
     Active Substance: CHOLECALCIFEROL
  31. ZOFRAN [Concomitant]
     Active Substance: ONDANSETRON HYDROCHLORIDE
  32. ARIMIDEX [Concomitant]
     Active Substance: ANASTROZOLE
     Dosage: NIGHTLY
  33. LEVOTHYROXINE. [Concomitant]
     Active Substance: LEVOTHYROXINE

REACTIONS (3)
  - Decreased immune responsiveness [Recovered/Resolved]
  - Femur fracture [Recovered/Resolved]
  - Foot fracture [Unknown]

NARRATIVE: CASE EVENT DATE: 202106
